FAERS Safety Report 24266044 (Version 2)
Quarter: 2024Q3

REPORT INFORMATION
  Report Type: Spontaneous
  Country: CN (occurrence: CN)
  Receive Date: 20240830
  Receipt Date: 20240903
  Transmission Date: 20241017
  Serious: Yes (Life-Threatening, Other)
  Sender: AMGEN
  Company Number: CN-SERVIER-S24010547

PATIENT
  Age: 65 Year
  Sex: Male

DRUGS (2)
  1. IVABRADINE HYDROCHLORIDE [Suspect]
     Active Substance: IVABRADINE HYDROCHLORIDE
     Indication: Heart rate abnormal
     Dosage: 5 MG, QD
     Route: 048
  2. AMIODARONE [Suspect]
     Active Substance: AMIODARONE
     Indication: Heart rate irregular
     Dosage: 0.6 G, UNKNOWN
     Route: 042

REACTIONS (7)
  - Adams-Stokes syndrome [Recovered/Resolved]
  - Torsade de pointes [Recovered/Resolved]
  - Ventricular tachycardia [Recovered/Resolved]
  - Loss of consciousness [Recovered/Resolved]
  - Ventricular fibrillation [Recovered/Resolved]
  - Electrocardiogram QT prolonged [Recovered/Resolved]
  - Product use issue [Recovered/Resolved]
